FAERS Safety Report 10063257 (Version 2)
Quarter: 2014Q2

REPORT INFORMATION
  Report Type: Spontaneous
  Country: JP (occurrence: JP)
  Receive Date: 20140407
  Receipt Date: 20140411
  Transmission Date: 20141212
  Serious: Yes (Death, Other)
  Sender: FDA-Public Use
  Company Number: JP-TEVA-471478ISR

PATIENT
  Age: 84 Year
  Sex: Female

DRUGS (3)
  1. PREDNISOLONE [Suspect]
     Indication: RHEUMATOID ARTHRITIS
     Dosage: 5 MILLIGRAM DAILY; 5 MG/DAY
     Route: 065
  2. METHOTREXATE [Suspect]
     Indication: RHEUMATOID ARTHRITIS
     Dosage: 5 MG/WEEK
     Route: 065
  3. MIZORIBINE [Concomitant]
     Indication: RHEUMATOID ARTHRITIS
     Route: 065

REACTIONS (5)
  - Death [Fatal]
  - Herpes zoster disseminated [Not Recovered/Not Resolved]
  - Skin ulcer [Not Recovered/Not Resolved]
  - Herpes zoster [Not Recovered/Not Resolved]
  - Viraemia [Not Recovered/Not Resolved]
